FAERS Safety Report 9994883 (Version 1)
Quarter: 2014Q1

REPORT INFORMATION
  Report Type: Spontaneous
  Country: US (occurrence: None)
  Receive Date: 20140307
  Receipt Date: 20140307
  Transmission Date: 20141002
  Serious: Yes (Disabling)
  Sender: FDA-Public Use
  Company Number: None

PATIENT
  Age: 19 Year
  Sex: Female
  Weight: 49.9 kg

DRUGS (1)
  1. LO LOESTRIN FE [Suspect]
     Indication: CONTRACEPTION
     Dosage: 1 PILL   ONCE DAILY TAKEN BY MOUTH
     Route: 048
     Dates: start: 20131006, end: 20140211

REACTIONS (4)
  - Anxiety [None]
  - Weight decreased [None]
  - Suicidal ideation [None]
  - Decreased appetite [None]
